FAERS Safety Report 6645214-5 (Version None)
Quarter: 2010Q1

REPORT INFORMATION
  Report Type: 
  Country: None (occurrence: None)
  Receive Date: 20100322
  Receipt Date: 20100308
  Transmission Date: 20100710
  Serious: Yes (Life-Threatening)
  Sender: FDA-Public Use
  Company Number: GB-BAUSCH-2010BL001294

PATIENT
  Age: 33 Year
  Sex: Female

DRUGS (6)
  1. DEXAMETHASONE [Suspect]
     Indication: ANAPHYLAXIS PROPHYLAXIS
     Route: 048
     Dates: start: 20091110
  2. CYCLOPHOSPHAMIDE [Concomitant]
     Indication: BREAST CANCER
     Route: 042
     Dates: start: 20091110, end: 20091222
  3. EPIRUBICIN [Concomitant]
     Indication: BREAST CANCER
     Route: 042
     Dates: start: 20091110, end: 20091222
  4. FLUOROURACIL [Concomitant]
     Indication: BREAST CANCER
     Route: 042
     Dates: start: 20091110, end: 20091222
  5. TRASTUZUMAB [Concomitant]
     Indication: BREAST CANCER
  6. TAXOTERE [Concomitant]
     Indication: BREAST CANCER
     Route: 042
     Dates: start: 20100112

REACTIONS (4)
  - DEPRESSION [None]
  - PSYCHOMOTOR RETARDATION [None]
  - SUICIDAL IDEATION [None]
  - WITHDRAWAL SYNDROME [None]
